FAERS Safety Report 23254599 (Version 1)
Quarter: 2023Q4

REPORT INFORMATION
  Report Type: Spontaneous
  Country: US (occurrence: US)
  Receive Date: 20231203
  Receipt Date: 20231203
  Transmission Date: 20240109
  Serious: No
  Sender: FDA-Public Use
  Company Number: US-SA-SAC20231123000732

PATIENT
  Age: 49 Year
  Sex: Male

DRUGS (1)
  1. DUPIXENT [Suspect]
     Active Substance: DUPILUMAB
     Indication: Eosinophilic oesophagitis
     Dosage: 300 MG, QOW
     Route: 058

REACTIONS (8)
  - Allergy to arthropod sting [Unknown]
  - Abdominal pain upper [Unknown]
  - Skin swelling [Unknown]
  - Back pain [Unknown]
  - Myalgia [Unknown]
  - Pruritus [Unknown]
  - Urticaria [Unknown]
  - Inappropriate schedule of product administration [Unknown]
